FAERS Safety Report 17087326 (Version 1)
Quarter: 2019Q4

REPORT INFORMATION
  Report Type: Spontaneous
  Country: US (occurrence: US)
  Receive Date: 20191128
  Receipt Date: 20191128
  Transmission Date: 20200122
  Serious: Yes (Hospitalization)
  Sender: FDA-Public Use
  Company Number: US-ZYDUS-043941

PATIENT
  Age: 56 Year
  Sex: Female

DRUGS (1)
  1. BOSENTAN. [Suspect]
     Active Substance: BOSENTAN
     Indication: PULMONARY ARTERIAL HYPERTENSION
     Route: 048
     Dates: start: 20190910

REACTIONS (6)
  - Product dose omission [Unknown]
  - Dyspnoea [Unknown]
  - Lymphoedema [Unknown]
  - Muscle tightness [Unknown]
  - Asthenia [Unknown]
  - Fluid retention [Unknown]

NARRATIVE: CASE EVENT DATE: 201911
